FAERS Safety Report 4481403-6 (Version None)
Quarter: 2004Q3

REPORT INFORMATION
  Report Type: 
  Country: None (occurrence: None)
  Receive Date: 20040923
  Receipt Date: 20040712
  Transmission Date: 20050211
  Serious: No
  Sender: FDA-Public Use
  Company Number: USA031254290

PATIENT
  Age: 80 Year
  Sex: Female
  Weight: 72 kg

DRUGS (5)
  1. FORTEO [Suspect]
     Indication: OSTEOPOROSIS
     Dates: start: 20030401, end: 20031207
  2. CALCIUM [Concomitant]
  3. VITAMIN E [Concomitant]
  4. VIOXX [Concomitant]
  5. LIPITOR [Concomitant]

REACTIONS (3)
  - BONE PAIN [None]
  - FEELING ABNORMAL [None]
  - INSOMNIA [None]
